FAERS Safety Report 4378237-X (Version None)
Quarter: 2004Q2

REPORT INFORMATION
  Report Type: 
  Country: None (occurrence: None)
  Receive Date: 20040609
  Receipt Date: 20040525
  Transmission Date: 20050107
  Serious: Yes (Other)
  Sender: FDA-Public Use
  Company Number: USA040361357

PATIENT
  Age: 78 Year
  Sex: Female
  Weight: 38 kg

DRUGS (9)
  1. FORTEO [Suspect]
     Indication: OSTEOPOROSIS
     Dosage: 20 UG/1 IN THE MORNING
     Dates: start: 20040209
  2. CALCIUM [Concomitant]
  3. DAILY VITAMINS [Concomitant]
  4. KLONOPIN [Concomitant]
  5. LAXATIVE [Concomitant]
  6. STOOL SOFTENER (DOCUSATE SODIUM) [Concomitant]
  7. FOLIC ACID [Concomitant]
  8. REMERON [Concomitant]
  9. NORVASC [Concomitant]

REACTIONS (13)
  - ABDOMINAL PAIN UPPER [None]
  - CONSTIPATION [None]
  - FALL [None]
  - FEELING ABNORMAL [None]
  - HUNGER [None]
  - MUSCULAR WEAKNESS [None]
  - NAUSEA [None]
  - OEDEMA PERIPHERAL [None]
  - PELVIC FRACTURE [None]
  - PHARMACEUTICAL PRODUCT COMPLAINT [None]
  - PRURITUS [None]
  - VIRAL INFECTION [None]
  - WEIGHT INCREASED [None]
